FAERS Safety Report 14157254 (Version 1)
Quarter: 2017Q4

REPORT INFORMATION
  Report Type: Spontaneous
  Country: FR (occurrence: FR)
  Receive Date: 20171103
  Receipt Date: 20171103
  Transmission Date: 20180321
  Serious: Yes (Hospitalization)
  Sender: FDA-Public Use
  Company Number: FR-PFIZER INC-2017465967

PATIENT
  Age: 64 Year
  Sex: Male

DRUGS (2)
  1. ARACYTINE [Suspect]
     Active Substance: CYTARABINE
     Indication: B-CELL TYPE ACUTE LEUKAEMIA
     Dosage: 1500 MG/M2, 2X/DAY (5.4 G)
     Route: 042
     Dates: start: 20170929, end: 20170930
  2. METHOTREXATE MYLAN [Suspect]
     Active Substance: METHOTREXATE SODIUM
     Indication: B-CELL TYPE ACUTE LEUKAEMIA
     Dosage: 1000 MG/M2, SINGLE (1.8G)
     Route: 042
     Dates: start: 20170928, end: 20170928

REACTIONS (1)
  - Acute kidney injury [Recovering/Resolving]

NARRATIVE: CASE EVENT DATE: 20170929
